FAERS Safety Report 9764990 (Version 1)
Quarter: 2013Q4

REPORT INFORMATION
  Report Type: Spontaneous
  Country: US (occurrence: US)
  Receive Date: 20131217
  Receipt Date: 20131217
  Transmission Date: 20140711
  Serious: No
  Sender: FDA-Public Use
  Company Number: US-PFIZER INC-2013361130

PATIENT
  Age: 71 Year
  Sex: Female
  Weight: 81.63 kg

DRUGS (6)
  1. GABAPENTIN [Suspect]
     Indication: NEUROPATHY PERIPHERAL
     Dosage: 300MG IN MORNING 300MG IN AFTERNOON AND 600 MG AT NIGHT, 3X/DAY
     Dates: start: 201311, end: 20131207
  2. WARFARIN [Suspect]
     Indication: CHRONIC OBSTRUCTIVE PULMONARY DISEASE
     Dosage: 2 MG, UNK
  3. PERCOCET [Suspect]
     Indication: PAIN IN EXTREMITY
     Dosage: [OXYCODONE 10MG]/[ACETAMINOPHEN 625MG], DAILY
  4. LISINOPRIL [Concomitant]
     Indication: BLOOD PRESSURE ABNORMAL
     Dosage: 05 MG, UNK
  5. LEVOTHYROXINE [Concomitant]
     Indication: HYPOTHYROIDISM
     Dosage: 50 UG, DAILY
  6. XANAX [Concomitant]
     Dosage: 2 MG, UNK

REACTIONS (4)
  - Fall [Unknown]
  - Middle insomnia [Unknown]
  - Feeling abnormal [Unknown]
  - Drug ineffective [Unknown]
